FAERS Safety Report 13870215 (Version 4)
Quarter: 2018Q2

REPORT INFORMATION
  Report Type: Spontaneous
  Country: US (occurrence: DE)
  Receive Date: 20170815
  Receipt Date: 20180420
  Transmission Date: 20180711
  Serious: Yes (Other)
  Sender: FDA-Public Use
  Company Number: US-SUNOVION-2017SUN003571

PATIENT

DRUGS (1)
  1. INDACATEROL AND GLYCOPYRROLATE [Suspect]
     Active Substance: GLYCOPYRROLATE\INDACATEROL MALEATE
     Indication: PRODUCT USED FOR UNKNOWN INDICATION
     Dosage: INDACATEROL GLYCOPYRRONIUM BROMIDE CAPSULE, 110/50 UG, 1 DF QD
     Route: 055

REACTIONS (2)
  - Mouth cyst [Unknown]
  - Device issue [Unknown]

NARRATIVE: CASE EVENT DATE: 20170727
